FAERS Safety Report 8201051-1 (Version None)
Quarter: 2012Q1

REPORT INFORMATION
  Report Type: 
  Country: None (occurrence: None)
  Receive Date: 20120312
  Receipt Date: 20120113
  Transmission Date: 20120608
  Serious: No
  Sender: FDA-Public Use
  Company Number: US-ABBOTT-12P-163-0893724-00

PATIENT
  Sex: Female

DRUGS (2)
  1. LUPRON DEPOT [Suspect]
     Indication: OESTROGEN THERAPY
  2. LUPRON DEPOT [Suspect]
     Indication: HYPERSENSITIVITY

REACTIONS (2)
  - OFF LABEL USE [None]
  - OVERDOSE [None]
